FAERS Safety Report 13862928 (Version 2)
Quarter: 2017Q4

REPORT INFORMATION
  Report Type: Report from Study
  Country: GB (occurrence: GB)
  Receive Date: 20170814
  Receipt Date: 20171204
  Transmission Date: 20180320
  Serious: Yes (Hospitalization)
  Sender: FDA-Public Use
  Company Number: GB-ROCHE-1617270

PATIENT
  Sex: Male

DRUGS (2)
  1. ESBRIET [Suspect]
     Active Substance: PIRFENIDONE
     Route: 048
  2. ESBRIET [Suspect]
     Active Substance: PIRFENIDONE
     Indication: IDIOPATHIC PULMONARY FIBROSIS
     Route: 048
     Dates: start: 20150713

REACTIONS (23)
  - Kidney infection [Unknown]
  - Pruritus [Not Recovered/Not Resolved]
  - Urinary tract infection [Unknown]
  - Skin hypertrophy [Not Recovered/Not Resolved]
  - Weight decreased [Unknown]
  - Malaise [Unknown]
  - Nausea [Not Recovered/Not Resolved]
  - Dysphonia [Unknown]
  - Thermal burn [Not Recovered/Not Resolved]
  - Abdominal discomfort [Unknown]
  - Pruritus [Unknown]
  - Sunburn [Unknown]
  - Ectropion [Unknown]
  - Rhinorrhoea [Not Recovered/Not Resolved]
  - Enteritis infectious [Unknown]
  - Nasopharyngitis [Unknown]
  - Erythema [Not Recovered/Not Resolved]
  - Rash [Unknown]
  - Mood altered [Unknown]
  - Cough [Recovering/Resolving]
  - Productive cough [Unknown]
  - Chills [Unknown]
  - Blood urine present [Unknown]

NARRATIVE: CASE EVENT DATE: 20150727
